FAERS Safety Report 16755970 (Version 1)
Quarter: 2019Q3

REPORT INFORMATION
  Report Type: Spontaneous
  Country: SE (occurrence: SE)
  Receive Date: 20190829
  Receipt Date: 20190829
  Transmission Date: 20191005
  Serious: Yes (Other)
  Sender: FDA-Public Use
  Company Number: SE-MYLANLABS-2019M1080952

PATIENT
  Sex: Female

DRUGS (8)
  1. FURIX [Concomitant]
     Dosage: 20 MILLIGRAM, QOD
  2. BISOPROLOL [Suspect]
     Active Substance: BISOPROLOL
     Indication: PRODUCT USED FOR UNKNOWN INDICATION
     Dosage: UNK
     Dates: end: 20190306
  3. LUNELAX [Concomitant]
     Active Substance: HERBALS\PLANTAGO OVATA LEAF
     Dosage: 1 DOSAGE FORM, QD
  4. CANDESARTAN. [Concomitant]
     Active Substance: CANDESARTAN
  5. OMEPRAZOLE. [Concomitant]
     Active Substance: OMEPRAZOLE
  6. PRADAXA [Concomitant]
     Active Substance: DABIGATRAN ETEXILATE MESYLATE
     Dosage: 150 MILLIGRAM (150 MG X 2)
  7. ALVEDON [Concomitant]
     Active Substance: ACETAMINOPHEN
     Dosage: 3 GRAM, QD
  8. MIRTAZAPINE. [Concomitant]
     Active Substance: MIRTAZAPINE
     Dosage: 15 MILLIGRAM, QD

REACTIONS (1)
  - Raynaud^s phenomenon [Not Recovered/Not Resolved]
